FAERS Safety Report 13738697 (Version 1)
Quarter: 2017Q3

REPORT INFORMATION
  Report Type: Report from Study
  Country: US (occurrence: US)
  Receive Date: 20170710
  Receipt Date: 20170710
  Transmission Date: 20171127
  Serious: No
  Sender: FDA-Public Use
  Company Number: US-SAOL THERAPEUTICS-2016SAO00054

PATIENT
  Age: 59 Year
  Sex: Female

DRUGS (8)
  1. BUPIVACAINE. [Suspect]
     Active Substance: BUPIVACAINE
     Dosage: 12.311 MG, \DAY
     Dates: start: 20140910
  2. DILAUDID [Suspect]
     Active Substance: HYDROMORPHONE HYDROCHLORIDE
     Dosage: 0.410 MG, \DAY
     Dates: start: 20140910
  3. DILAUDID [Suspect]
     Active Substance: HYDROMORPHONE HYDROCHLORIDE
     Dosage: 0.389 MG, \DAY
     Dates: start: 20140912
  4. CLONIDINE. [Suspect]
     Active Substance: CLONIDINE
     Dosage: 164.14 ?G, \DAY
     Dates: start: 20140910
  5. COMPOUNDED BACLOFEN [Suspect]
     Active Substance: BACLOFEN
     Dosage: 82.07 ?G, \DAY
     Dates: start: 20140910, end: 20140912
  6. CLONIDINE. [Suspect]
     Active Substance: CLONIDINE
     Dosage: 155.97 ?G, \DAY
     Dates: start: 20140912
  7. BUPIVACAINE. [Suspect]
     Active Substance: BUPIVACAINE
     Dosage: 11.697 MG, \DAY
     Dates: start: 20140912
  8. COMPOUNDED BACLOFEN [Suspect]
     Active Substance: BACLOFEN
     Dosage: 77.98 ?G, \DAY
     Dates: start: 20140912

REACTIONS (2)
  - Implant site swelling [Recovered/Resolved]
  - Implant site pain [Recovered/Resolved]

NARRATIVE: CASE EVENT DATE: 20140915
